FAERS Safety Report 12825869 (Version 1)
Quarter: 2016Q4

REPORT INFORMATION
  Report Type: Spontaneous
  Country: US (occurrence: US)
  Receive Date: 20161007
  Receipt Date: 20161007
  Transmission Date: 20170207
  Serious: No
  Sender: FDA-Public Use
  Company Number: US-WATSON-2015-19525

PATIENT
  Age: 68 Year
  Sex: Female

DRUGS (1)
  1. FENTANYL-50 (WATSON LABORATORIES) [Suspect]
     Active Substance: FENTANYL
     Indication: PAIN
     Dosage: 50 MCG, EVERY 72 HOURS
     Route: 062
     Dates: start: 201506

REACTIONS (4)
  - Withdrawal syndrome [Not Recovered/Not Resolved]
  - Fatigue [Recovered/Resolved]
  - Drug dose omission [Not Recovered/Not Resolved]
  - Pain [Not Recovered/Not Resolved]

NARRATIVE: CASE EVENT DATE: 201509
